FAERS Safety Report 5499402-4 (Version None)
Quarter: 2007Q4

REPORT INFORMATION
  Report Type: 
  Country: None (occurrence: None)
  Receive Date: 20071026
  Receipt Date: 20071019
  Transmission Date: 20080405
  Serious: No
  Sender: FDA-Public Use
  Company Number: B0489053A

PATIENT
  Age: 35 Year
  Sex: Female

DRUGS (9)
  1. SERETIDE [Suspect]
     Indication: ASTHMA
     Route: 055
     Dates: start: 20070728, end: 20070807
  2. ASTOMIN [Concomitant]
     Indication: BRONCHITIS
     Dosage: 30MG PER DAY
     Route: 048
     Dates: start: 20070728, end: 20070803
  3. MUCOSOLVAN [Concomitant]
     Indication: BRONCHITIS
     Dosage: 15MG THREE TIMES PER DAY
     Route: 048
     Dates: start: 20070728, end: 20070803
  4. SINGULAIR [Concomitant]
     Indication: ASTHMA
     Dosage: 10MG PER DAY
     Route: 048
     Dates: start: 20070728, end: 20070803
  5. MEDICON [Concomitant]
     Indication: BRONCHITIS
     Dosage: 45MG PER DAY
     Route: 048
     Dates: start: 20070806, end: 20070807
  6. MUCODYNE [Concomitant]
     Indication: BRONCHITIS
     Dosage: 500MG THREE TIMES PER DAY
     Route: 048
     Dates: start: 20070806, end: 20070901
  7. ONON [Concomitant]
     Indication: ASTHMA
     Dosage: 225MG TWICE PER DAY
     Route: 048
     Dates: start: 20070806, end: 20070807
  8. FLUTIDE DISKUS [Concomitant]
     Indication: ASTHMA
     Dosage: 400MCG PER DAY
     Route: 055
     Dates: start: 20070804
  9. THEO-DUR [Concomitant]
     Indication: ASTHMA
     Dosage: 200MG PER DAY
     Route: 048
     Dates: start: 20070811

REACTIONS (5)
  - DIZZINESS [None]
  - DIZZINESS POSTURAL [None]
  - NAUSEA [None]
  - SOMNOLENCE [None]
  - VOMITING [None]
